FAERS Safety Report 18090337 (Version 2)
Quarter: 2020Q3

REPORT INFORMATION
  Report Type: Spontaneous
  Country: US (occurrence: US)
  Receive Date: 20200730
  Receipt Date: 20200803
  Transmission Date: 20201103
  Serious: No
  Sender: FDA-Public Use
  Company Number: US-ELI_LILLY_AND_COMPANY-US202007012020

PATIENT
  Age: 62 Year
  Sex: Male

DRUGS (1)
  1. FORTEO [Suspect]
     Active Substance: TERIPARATIDE
     Indication: PRODUCT USED FOR UNKNOWN INDICATION
     Dosage: UNK, UNKNOWN
     Route: 065
     Dates: start: 201908

REACTIONS (5)
  - Arthralgia [Not Recovered/Not Resolved]
  - Myalgia [Unknown]
  - Tendon pain [Unknown]
  - Arthritis [Unknown]
  - Bone pain [Unknown]

NARRATIVE: CASE EVENT DATE: 201908
